FAERS Safety Report 5150225-5 (Version None)
Quarter: 2006Q4

REPORT INFORMATION
  Report Type: 
  Country: None (occurrence: None)
  Receive Date: 20061114
  Receipt Date: 20010816
  Transmission Date: 20070319
  Serious: Yes (Death)
  Sender: FDA-Public Use
  Company Number: JP-ABBOTT-01P-087-0110233-00

PATIENT
  Sex: Male

DRUGS (20)
  1. KALETRA [Suspect]
     Indication: HIV INFECTION
     Dosage: SIX CAPSULES DAILY
     Route: 048
     Dates: start: 20010206, end: 20010319
  2. KALETRA [Suspect]
     Route: 048
     Dates: start: 20010418, end: 20021204
  3. NEVIRAPINE [Suspect]
     Indication: HIV INFECTION
     Dosage: 200 MILLIGRAMS DAILY
     Route: 048
     Dates: start: 20010206, end: 20010219
  4. NEVIRAPINE [Suspect]
     Route: 048
     Dates: start: 20010220, end: 20010319
  5. ABACAVIR SULFATE [Suspect]
     Indication: HIV INFECTION
     Dosage: 600 MILLIGRAMS DAILY
     Route: 048
     Dates: start: 20010206, end: 20010220
  6. EFAVIRENZ [Suspect]
     Indication: HIV INFECTION
     Dosage: 600 MILLIGRAMS DAILY
     Route: 048
     Dates: start: 20010421, end: 20021204
  7. STAVUDINE [Suspect]
     Indication: HIV INFECTION
     Dosage: 60 MILLIGRAMS DAILY
     Route: 048
     Dates: start: 20010206, end: 20010319
  8. STAVUDINE [Suspect]
     Route: 048
     Dates: start: 19991101, end: 20000820
  9. STAVUDINE [Suspect]
     Route: 048
     Dates: start: 20010421, end: 20021203
  10. DIDANOSINE [Concomitant]
     Indication: HIV INFECTION
     Dosage: 334 MILLIGRAMS DAILY
     Route: 048
     Dates: start: 19991101, end: 20000730
  11. LAMIVUDINE [Concomitant]
     Indication: HIV INFECTION
     Dosage: 300 MILLIGRAMS DAILY
     Route: 048
     Dates: start: 20000731, end: 20000820
  12. NELFINAVIR [Concomitant]
     Indication: HIV INFECTION
     Dosage: 2.5 GRAMS DAILY
     Route: 048
     Dates: start: 19991101, end: 20000820
  13. OCTOCOG ALFA [Concomitant]
     Indication: FACTOR VIII DEFICIENCY
     Dosage: 1,000 TO 2,000 UNITS PER WEEK
     Dates: start: 19991101, end: 20021210
  14. ECABET [Concomitant]
     Indication: GASTRITIS
     Dosage: 2 GRAMS DAILY
     Route: 048
     Dates: start: 20020221, end: 20020531
  15. BIFIDOBACTERIUM [Concomitant]
     Indication: DIARRHOEA
     Dosage: 1.5 GRAMS DAILY
     Route: 048
     Dates: start: 20010702, end: 20020531
  16. PL [Concomitant]
     Indication: UPPER RESPIRATORY TRACT INFECTION
     Dosage: 3 GRAMS DAILY
     Route: 048
     Dates: start: 20020410, end: 20020415
  17. AZITHROMYCIN [Concomitant]
     Indication: UPPER RESPIRATORY TRACT INFECTION
     Dosage: 500 MILLIGRAMS DAILY
     Route: 048
     Dates: start: 20020410, end: 20020412
  18. SUCRALFATE [Concomitant]
     Indication: GASTRITIS
     Dosage: 3 GRAMS DAILY
     Route: 048
     Dates: start: 20020709, end: 20020805
  19. PEG-INTRON [Concomitant]
     Indication: HEPATITIS C
     Dosage: 64.5 UNITS WEEKLY
     Dates: start: 20021219, end: 20021226
  20. RIBAVIRIN [Concomitant]
     Indication: HEPATITIS C
     Dosage: 600 MILLIGRAMS DAILY
     Route: 048

REACTIONS (15)
  - ARTHRALGIA [None]
  - DISTURBANCE IN ATTENTION [None]
  - DUODENAL ULCER [None]
  - HYPOKALAEMIA [None]
  - IRRITABILITY [None]
  - MALAISE [None]
  - METABOLIC DISORDER [None]
  - MULTI-ORGAN DISORDER [None]
  - MYALGIA [None]
  - ORAL CANDIDIASIS [None]
  - PNEUMONIA [None]
  - PYREXIA [None]
  - RASH [None]
  - STAPHYLOCOCCAL SEPSIS [None]
  - WEIGHT DECREASED [None]
